FAERS Safety Report 15127709 (Version 1)
Quarter: 2018Q3

REPORT INFORMATION
  Report Type: Spontaneous
  Country: US (occurrence: US)
  Receive Date: 20180710
  Receipt Date: 20180710
  Transmission Date: 20181010
  Serious: No
  Sender: FDA-Public Use
  Company Number: US-TERSERA THERAPEUTICS, LLC-2051689

PATIENT
  Age: 45 Year
  Sex: Female
  Weight: 153.29 kg

DRUGS (1)
  1. ZOLADEX [Suspect]
     Active Substance: GOSERELIN ACETATE
     Indication: BREAST CANCER
     Route: 058

REACTIONS (2)
  - Device expulsion [Unknown]
  - Syringe issue [Unknown]

NARRATIVE: CASE EVENT DATE: 20170906
